FAERS Safety Report 8553392-6 (Version None)
Quarter: 2012Q3

REPORT INFORMATION
  Report Type: 
  Country: None (occurrence: None)
  Receive Date: 20120731
  Receipt Date: 20120725
  Transmission Date: 20120928
  Serious: Yes (Hospitalization, Other)
  Sender: FDA-Public Use
  Company Number: JP-TEVA-348952ISR

PATIENT
  Age: 70 Year
  Sex: Female

DRUGS (3)
  1. LANSOPRAZOLE [Suspect]
     Dosage: 15 MILLIGRAM;
     Route: 048
     Dates: start: 20120601, end: 20120709
  2. SUCRALFATE [Concomitant]
     Route: 048
     Dates: start: 20120601
  3. FERROUS CITRATE [Concomitant]
     Route: 048
     Dates: start: 20120601

REACTIONS (2)
  - NEOPLASM MALIGNANT [None]
  - LIVER DISORDER [None]
